FAERS Safety Report 23786019 (Version 1)
Quarter: 2024Q2

REPORT INFORMATION
  Report Type: Spontaneous
  Country: TW (occurrence: TW)
  Receive Date: 20240426
  Receipt Date: 20240426
  Transmission Date: 20240715
  Serious: Yes (Death)
  Sender: FDA-Public Use
  Company Number: TW-PFIZER INC-PV202400053848

PATIENT
  Age: 64 Year
  Sex: Male

DRUGS (1)
  1. ENBREL [Suspect]
     Active Substance: BENZYL ALCOHOL\ETANERCEPT
     Indication: Ankylosing spondylitis
     Dosage: 25 MG, BIW
     Route: 058
     Dates: start: 20120330, end: 20240423

REACTIONS (1)
  - Death [Fatal]

NARRATIVE: CASE EVENT DATE: 20240401
